FAERS Safety Report 12925006 (Version 1)
Quarter: 2016Q4

REPORT INFORMATION
  Report Type: Spontaneous
  Country: US (occurrence: US)
  Receive Date: 20161108
  Receipt Date: 20161108
  Transmission Date: 20170207
  Serious: Yes (Hospitalization)
  Sender: FDA-Public Use
  Company Number: US-RELYPSA-RLY2016003579

PATIENT
  Age: 59 Year
  Sex: Male

DRUGS (14)
  1. TAMSULOSIN [Concomitant]
     Active Substance: TAMSULOSIN
  2. HUMALOG MIX [Concomitant]
     Active Substance: INSULIN LISPRO
  3. HYDROCODONE BITARTRATE AND ACETAMINOPHEN [Concomitant]
     Active Substance: ACETAMINOPHEN\HYDROCODONE BITARTRATE
  4. LANTUS [Concomitant]
     Active Substance: INSULIN GLARGINE
  5. ALLOPURINOL. [Concomitant]
     Active Substance: ALLOPURINOL
  6. CALCITRIOL. [Concomitant]
     Active Substance: CALCITRIOL
  7. PANCRELIPASE. [Concomitant]
     Active Substance: PANCRELIPASE
  8. PROMETHAZINE [Concomitant]
     Active Substance: PROMETHAZINE\PROMETHAZINE HYDROCHLORIDE
  9. RHINOCORT                          /00212602/ [Concomitant]
  10. LORATADINE. [Concomitant]
     Active Substance: LORATADINE
  11. VELTASSA [Suspect]
     Active Substance: PATIROMER
     Indication: HYPERKALAEMIA
     Dosage: 8.4 G, QD
     Route: 048
     Dates: start: 20160518
  12. FINASTERIDE. [Concomitant]
     Active Substance: FINASTERIDE
  13. SODIUM BICARBONATE. [Concomitant]
     Active Substance: SODIUM BICARBONATE
  14. HYDROXYCHLOROQUINE SULFATE. [Concomitant]
     Active Substance: HYDROXYCHLOROQUINE SULFATE

REACTIONS (1)
  - Surgery [Not Recovered/Not Resolved]

NARRATIVE: CASE EVENT DATE: 20161102
